FAERS Safety Report 17296482 (Version 1)
Quarter: 2020Q1

REPORT INFORMATION
  Report Type: Spontaneous
  Country: JP (occurrence: JP)
  Receive Date: 20200122
  Receipt Date: 20200122
  Transmission Date: 20200409
  Serious: Yes (Disabling, Other)
  Sender: FDA-Public Use
  Company Number: JP-ROCHE-2523176

PATIENT
  Age: 66 Year
  Sex: Male
  Weight: 45 kg

DRUGS (8)
  1. CYMEVENE [GANCICLOVIR] [Suspect]
     Active Substance: GANCICLOVIR
     Indication: CYTOMEGALOVIRUS CHORIORETINITIS
     Route: 065
     Dates: start: 201903, end: 20190415
  2. VALGANCICLOVIR. [Suspect]
     Active Substance: VALGANCICLOVIR
     Indication: CYTOMEGALOVIRUS CHORIORETINITIS
     Route: 065
     Dates: start: 2019, end: 20190415
  3. DEXART [Suspect]
     Active Substance: DEXAMETHASONE SODIUM PHOSPHATE
     Indication: VOMITING
     Route: 041
     Dates: start: 20190122, end: 20190313
  4. SANBETASON [Concomitant]
     Active Substance: DEXAMETHASONE
     Route: 047
  5. ATROPINE. [Concomitant]
     Active Substance: ATROPINE
     Route: 047
  6. LEVOFLOXACIN. [Concomitant]
     Active Substance: LEVOFLOXACIN
     Route: 047
  7. ISTODAX [Suspect]
     Active Substance: ROMIDEPSIN
     Indication: ANGIOIMMUNOBLASTIC T-CELL LYMPHOMA REFRACTORY
     Route: 041
     Dates: start: 20190122
  8. RINDERON [BETAMETHASONE] [Suspect]
     Active Substance: BETAMETHASONE
     Indication: TUMOUR ASSOCIATED FEVER
     Dosage: 0.5 TO 4 MG
     Route: 048
     Dates: start: 20180523, end: 20190218

REACTIONS (4)
  - Neutropenia [Recovering/Resolving]
  - Visual acuity reduced [Unknown]
  - Platelet count decreased [Unknown]
  - Cystitis [Recovered/Resolved]

NARRATIVE: CASE EVENT DATE: 2019
